FAERS Safety Report 6315497-X (Version None)
Quarter: 2009Q3

REPORT INFORMATION
  Report Type: 
  Country: None (occurrence: None)
  Receive Date: 20090819
  Receipt Date: 20090805
  Transmission Date: 20100115
  Serious: Yes (Other)
  Sender: FDA-Public Use
  Company Number: ZA-PFIZER INC-2009252136

PATIENT
  Age: 74 Year

DRUGS (4)
  1. PHENYTOIN SODIUM CAP [Suspect]
     Indication: CONVULSION PROPHYLAXIS
     Dosage: UNK
     Route: 048
     Dates: start: 20090101
  2. AMILORETIC [Suspect]
     Indication: HYPERTENSION
     Dosage: 5/2.5 MG, 1 TABLET DAILY
     Route: 048
     Dates: start: 20090101
  3. CRESTOR [Suspect]
     Indication: BLOOD CHOLESTEROL
     Dosage: 5 MG, 1X/DAY
     Route: 048
     Dates: start: 20090101
  4. MOLIPAXIN [Suspect]
     Indication: DEPRESSION
     Dosage: 50 MG, 1X/DAY
     Route: 048
     Dates: start: 20090101

REACTIONS (1)
  - MOTOR DYSFUNCTION [None]
